FAERS Safety Report 5245960-4 (Version None)
Quarter: 2007Q1

REPORT INFORMATION
  Report Type: 
  Country: None (occurrence: None)
  Receive Date: 20070221
  Receipt Date: 20070207
  Transmission Date: 20070707
  Serious: Yes (Hospitalization)
  Sender: FDA-Public Use
  Company Number: 02100-JPN-06-0502

PATIENT
  Age: 80 Year
  Sex: Male

DRUGS (4)
  1. CILOSTAZOL [Suspect]
     Indication: ARTERIOSCLEROSIS OBLITERANS
     Dosage: 200 MG ORAL
     Route: 048
     Dates: start: 20030227, end: 20030322
  2. CILOSTAZOL [Suspect]
     Indication: BRADYCARDIA
     Dosage: 200 MG ORAL
     Route: 048
     Dates: start: 20030227, end: 20030322
  3. ASPIRIN [Concomitant]
  4. METILDIGOXIN [Concomitant]

REACTIONS (9)
  - ATRIAL FIBRILLATION [None]
  - ATRIAL FLUTTER [None]
  - BUNDLE BRANCH BLOCK LEFT [None]
  - CARDIAC FAILURE [None]
  - COLD SWEAT [None]
  - DIZZINESS [None]
  - PALPITATIONS [None]
  - PULMONARY CONGESTION [None]
  - SINUS ARREST [None]
